FAERS Safety Report 9479303 (Version 2)
Quarter: 2013Q4

REPORT INFORMATION
  Report Type: Report from Study
  Country: US (occurrence: US)
  Receive Date: 20130827
  Receipt Date: 20131205
  Transmission Date: 20140711
  Serious: Yes (Death, Life-Threatening, Hospitalization, Other)
  Sender: FDA-Public Use
  Company Number: US-US-EMD SERONO, INC.-7233634

PATIENT
  Age: 64 Year
  Sex: Male

DRUGS (1)
  1. REBIF [Suspect]
     Indication: MULTIPLE SCLEROSIS
     Route: 058
     Dates: start: 20080729

REACTIONS (4)
  - Multiple sclerosis [Fatal]
  - Dyspnoea [Unknown]
  - Sleep apnoea syndrome [Unknown]
  - Pneumonia [Unknown]
